FAERS Safety Report 15429692 (Version 2)
Quarter: 2018Q4

REPORT INFORMATION
  Report Type: Spontaneous
  Country: BR (occurrence: BR)
  Receive Date: 20180926
  Receipt Date: 20181031
  Transmission Date: 20190204
  Serious: Yes (Death, Other)
  Sender: FDA-Public Use
  Company Number: BR-ELI_LILLY_AND_COMPANY-BR201809011088

PATIENT
  Age: 72 Year
  Sex: Male

DRUGS (2)
  1. DOXORUBICIN [Concomitant]
     Active Substance: DOXORUBICIN
     Indication: LIPOSARCOMA METASTATIC
     Dosage: UNK, CYCLICAL
  2. OLARATUMAB [Suspect]
     Active Substance: OLARATUMAB
     Indication: LIPOSARCOMA METASTATIC
     Dosage: UNK UNK, CYCLICAL
     Route: 065

REACTIONS (2)
  - Respiratory failure [Fatal]
  - Malignant neoplasm progression [Fatal]
